FAERS Safety Report 5735395-X (Version None)
Quarter: 2008Q2

REPORT INFORMATION
  Report Type: 
  Country: None (occurrence: None)
  Receive Date: 20080512
  Receipt Date: 20080428
  Transmission Date: 20081010
  Serious: Yes (Death, Other)
  Sender: FDA-Public Use
  Company Number: JP-TEVA-171301ISR

PATIENT
  Age: 67 Year
  Sex: Male

DRUGS (6)
  1. CISPLATIN [Suspect]
     Indication: OESOPHAGEAL CARCINOMA
     Dosage: 100 MG/BODY (CYCLIC: ON DAY1)
     Route: 042
     Dates: start: 20061201
  2. CISPLATIN [Suspect]
     Dosage: 100 MG/BODY (CYCLIC ON DAY 1)
     Route: 042
     Dates: start: 20070101
  3. CISPLATIN [Suspect]
     Dosage: 100 MG/BODY (CYCLIC ON DAY 1)
     Route: 042
     Dates: start: 20070401
  4. IRINOTECAN HCL [Suspect]
     Indication: OESOPHAGEAL CARCINOMA
     Dosage: 100 MG/BODY (CYCLIC: ON DAY 14 AND 28)
     Route: 042
     Dates: start: 20061201
  5. IRINOTECAN HCL [Suspect]
     Dosage: 100 MG/BODY (CYCLIC: ON DAY 1 AND 8)
     Route: 042
     Dates: start: 20070101
  6. IRINOTECAN HCL [Suspect]
     Dosage: 100MG/BODY (CYCLIC:ON DAY 1 AND 8)
     Route: 042
     Dates: start: 20070401

REACTIONS (4)
  - DEATH [None]
  - DIARRHOEA [None]
  - ELECTROLYTE IMBALANCE [None]
  - WHITE BLOOD CELL COUNT DECREASED [None]
